FAERS Safety Report 11906201 (Version 2)
Quarter: 2016Q2

REPORT INFORMATION
  Report Type: Spontaneous
  Country: US (occurrence: US)
  Receive Date: 20160111
  Receipt Date: 20160630
  Transmission Date: 20160815
  Serious: Yes (Other)
  Sender: FDA-Public Use
  Company Number: US-SA-2014SA092131

PATIENT

DRUGS (2)
  1. GAS-X [Suspect]
     Active Substance: DIMETHICONE
     Indication: SUICIDE ATTEMPT
     Dosage: 4 GAS-X
     Route: 065
  2. ROLAIDS GENERIC [Suspect]
     Active Substance: CALCIUM CARBONATE\MAGNESIUM HYDROXIDE
     Indication: SUICIDE ATTEMPT
     Dosage: 10 ROLAIDS IN THE PAST TWO HOURS
     Route: 065

REACTIONS (2)
  - Suicide attempt [Unknown]
  - Rash [Not Recovered/Not Resolved]
